FAERS Safety Report 8429664 (Version 3)
Quarter: 2012Q4

REPORT INFORMATION
  Report Type: 
  Country: BR (occurrence: BR)
  Receive Date: 20120227
  Receipt Date: 20121005
  Transmission Date: 20130627
  Serious: Yes (Death, Life-Threatening, Hospitalization)
  Sender: FDA-Public Use
  Company Number: BR-ASTRAZENECA-2012SE11595

PATIENT
  Age: 68 Year
  Sex: Male

DRUGS (1)
  1. CRESTOR [Suspect]
     Route: 048

REACTIONS (8)
  - Neoplasm malignant [Fatal]
  - Lung adenocarcinoma metastatic [Fatal]
  - Hepatic cancer metastatic [Fatal]
  - Metastases to central nervous system [Fatal]
  - Metastases to bone [Fatal]
  - Cardiac arrest [Fatal]
  - Renal failure [Fatal]
  - Coma [Fatal]
